FAERS Safety Report 11112546 (Version 1)
Quarter: 2015Q2

REPORT INFORMATION
  Report Type: Spontaneous
  Country: FR (occurrence: FR)
  Receive Date: 20150514
  Receipt Date: 20150514
  Transmission Date: 20150821
  Serious: Yes (Life-Threatening, Hospitalization)
  Sender: FDA-Public Use
  Company Number: FR-TEVA-562647ISR

PATIENT
  Age: 51 Year
  Sex: Female

DRUGS (5)
  1. VENLAFAXINE [Suspect]
     Active Substance: VENLAFAXINE HYDROCHLORIDE
     Dosage: 750 MILLIGRAM DAILY; UNIQUE DOSE AT 05:00 P.M
     Route: 048
     Dates: start: 20150320, end: 20150320
  2. EPITOMAX 100 MG [Suspect]
     Active Substance: TOPIRAMATE
     Dosage: 700 MILLIGRAM DAILY; UNIQUE DOSE AT 05:00 P.M
     Route: 048
     Dates: start: 20150320, end: 20150320
  3. LYRICA [Suspect]
     Active Substance: PREGABALIN
     Dosage: 4200 MILLIGRAM DAILY; UNIQUE DOSE AT 05:00 P.M
     Route: 048
     Dates: start: 20150320, end: 20150320
  4. CLOMIPRAMINE TEVA 25 MG [Suspect]
     Active Substance: CLOMIPRAMINE
     Dosage: 250 MILLIGRAM DAILY; UNIQUE DOSE AT 05:00 P.M
     Route: 048
     Dates: start: 20150320, end: 20150320
  5. NEURONTIN [Suspect]
     Active Substance: GABAPENTIN
     Dosage: 6000 MILLIGRAM DAILY; UNIQUE DOSE AT 05:00 P.M
     Route: 048
     Dates: start: 20150320, end: 20150320

REACTIONS (5)
  - Motor dysfunction [Unknown]
  - Poisoning deliberate [Recovered/Resolved]
  - Hypotension [Recovered/Resolved]
  - Headache [Unknown]
  - Musculoskeletal disorder [None]

NARRATIVE: CASE EVENT DATE: 20150320
